FAERS Safety Report 7581214-9 (Version None)
Quarter: 2011Q2

REPORT INFORMATION
  Report Type: 
  Country: None (occurrence: None)
  Receive Date: 20110629
  Receipt Date: 20110622
  Transmission Date: 20111010
  Serious: Yes (Other)
  Sender: FDA-Public Use
  Company Number: US-GENENTECH-320627

PATIENT
  Sex: Female
  Weight: 74.1 kg

DRUGS (2)
  1. XOLAIR [Suspect]
     Dosage: 1.2 ML, Q4W
     Route: 058
     Dates: start: 20110322, end: 20110322
  2. XOLAIR [Suspect]
     Indication: ASTHMA
     Dosage: 1.2 ML, Q4W
     Route: 058
     Dates: start: 20110222

REACTIONS (2)
  - ARTHRALGIA [None]
  - JOINT STIFFNESS [None]
